FAERS Safety Report 5507276-8 (Version None)
Quarter: 2007Q4

REPORT INFORMATION
  Report Type: 
  Country: None (occurrence: None)
  Receive Date: 20071106
  Receipt Date: 20071026
  Transmission Date: 20080405
  Serious: Yes (Hospitalization, Other)
  Sender: FDA-Public Use
  Company Number: PHHO2007JP14804

PATIENT
  Age: 69 Year
  Sex: Female
  Weight: 52 kg

DRUGS (4)
  1. LETROZOLE [Suspect]
     Indication: BREAST CANCER
     Dosage: 2.5 MG, QD
     Route: 048
     Dates: start: 20070731, end: 20070827
  2. PYDOXAL [Concomitant]
     Indication: NEUROPATHY PERIPHERAL
  3. RINDERON-VG [Concomitant]
     Indication: RADIATION SKIN INJURY
  4. RADIATION THERAPY [Concomitant]
     Dates: start: 20070705, end: 20070815

REACTIONS (7)
  - COUGH [None]
  - DERMATITIS [None]
  - DIZZINESS [None]
  - ERYTHEMA [None]
  - ERYTHEMA MULTIFORME [None]
  - PRURITUS [None]
  - RASH [None]
